FAERS Safety Report 18702910 (Version 3)
Quarter: 2021Q1

REPORT INFORMATION
  Report Type: Spontaneous
  Country: GB (occurrence: GB)
  Receive Date: 20210105
  Receipt Date: 20210306
  Transmission Date: 20210419
  Serious: Yes (Death, Life-Threatening, Hospitalization, Disabling, Other)
  Sender: FDA-Public Use
  Company Number: NVSC2021GB000724

PATIENT
  Age: 68 Year
  Sex: Female

DRUGS (1)
  1. METHOTREXATE. [Suspect]
     Active Substance: METHOTREXATE
     Indication: ARTHRITIS
     Dosage: UNK
     Route: 048

REACTIONS (5)
  - Hepatic failure [Fatal]
  - Renal disorder [Fatal]
  - Arrhythmia [Fatal]
  - Cardiac disorder [Fatal]
  - Influenza like illness [Fatal]

NARRATIVE: CASE EVENT DATE: 201609
